FAERS Safety Report 9304804 (Version 1)
Quarter: 2013Q2

REPORT INFORMATION
  Report Type: Spontaneous
  Country: NL (occurrence: None)
  Receive Date: 20130521
  Receipt Date: 20130521
  Transmission Date: 20140414
  Serious: Yes (Hospitalization)
  Sender: FDA-Public Use
  Company Number: 2013AP005121

PATIENT
  Age: 21 Year
  Sex: Male

DRUGS (5)
  1. FERRIPROX [Suspect]
     Indication: THALASSAEMIA BETA
     Route: 048
     Dates: start: 199804, end: 201107
  2. EXJADE [Suspect]
     Indication: THALASSAEMIA BETA
     Dates: start: 201107
  3. DESFERAL [Suspect]
     Indication: THALASSAEMIA BETA
     Route: 058
     Dates: start: 201204, end: 201210
  4. ANDROTARDYL [Concomitant]
  5. LEVOTHYROXINE [Concomitant]

REACTIONS (12)
  - Arthropathy [None]
  - Blood iron increased [None]
  - Abdominal pain [None]
  - Haemoglobin decreased [None]
  - Cholelithiasis [None]
  - Sinusitis [None]
  - Torticollis [None]
  - Asthenia [None]
  - Mobility decreased [None]
  - Intervertebral discitis [None]
  - Bone abscess [None]
  - Liver function test abnormal [None]
